FAERS Safety Report 8259191-7 (Version None)
Quarter: 2012Q2

REPORT INFORMATION
  Report Type: 
  Country: None (occurrence: None)
  Receive Date: 20120404
  Receipt Date: 20120323
  Transmission Date: 20120825
  Serious: Yes (Other)
  Sender: FDA-Public Use
  Company Number: FR-SANOFI-AVENTIS-2012SA020220

PATIENT
  Age: 84 Year
  Sex: Male

DRUGS (11)
  1. OMEPRAZOLE [Concomitant]
  2. RIFADIN [Suspect]
     Dosage: STRENGTH; 300 MG
     Route: 048
     Dates: start: 20120101, end: 20120101
  3. ZYVOX [Suspect]
     Dosage: STRENGTH; 600 MG
     Route: 048
     Dates: start: 20120123, end: 20120201
  4. VANCOMYCIN [Concomitant]
  5. PRAZOSIN HCL [Concomitant]
  6. FLUINDIONE [Concomitant]
  7. SPIRONOLACTONE [Concomitant]
  8. LOVENOX [Concomitant]
  9. LACCODERME ACIDE SALICYLIQUE [Concomitant]
  10. RUPATADINE [Concomitant]
  11. FUROSEMIDE [Concomitant]

REACTIONS (5)
  - NEUROPATHY PERIPHERAL [None]
  - RENAL FAILURE CHRONIC [None]
  - PARAESTHESIA [None]
  - CONDITION AGGRAVATED [None]
  - RENAL FAILURE [None]
